FAERS Safety Report 9227998 (Version 1)
Quarter: 2013Q2

REPORT INFORMATION
  Report Type: Report from Study
  Country: CA (occurrence: CA)
  Receive Date: 20130412
  Receipt Date: 20130412
  Transmission Date: 20140414
  Serious: Yes (Other)
  Sender: FDA-Public Use
  Company Number: CA-JNJFOC-20130401848

PATIENT
  Age: 63 Year
  Sex: Male
  Weight: 115.7 kg

DRUGS (9)
  1. REMICADE [Suspect]
     Indication: CROHN^S DISEASE
     Dosage: 46TH INFUSION TO DATE
     Route: 042
  2. VITAMIN B12 [Concomitant]
     Route: 065
  3. CHOLESTYRAMINE [Concomitant]
     Route: 065
  4. ZOVIRAX [Concomitant]
     Route: 065
  5. VIT D [Concomitant]
     Route: 065
  6. ZOPICLONE [Concomitant]
     Route: 065
  7. RABEPRAZOLE [Concomitant]
     Route: 065
  8. VENTOLIN [Concomitant]
     Route: 065
  9. LOMOTIL [Concomitant]
     Route: 065

REACTIONS (1)
  - Huerthle cell carcinoma [Unknown]
